FAERS Safety Report 11840586 (Version 1)
Quarter: 2015Q4

REPORT INFORMATION
  Report Type: Spontaneous
  Country: US (occurrence: None)
  Receive Date: 20151215
  Receipt Date: 20151215
  Transmission Date: 20160305
  Serious: Yes (Other)
  Sender: FDA-Public Use
  Company Number: None

PATIENT
  Age: 67 Year
  Sex: Female
  Weight: 60.78 kg

DRUGS (4)
  1. LOVASTATIN. [Suspect]
     Active Substance: LOVASTATIN
  2. LOSARTAN. [Concomitant]
     Active Substance: LOSARTAN
  3. ATROVASTATIN [Suspect]
     Active Substance: ATORVASTATIN CALCIUM
     Indication: BLOOD CHOLESTEROL INCREASED
     Dosage: 1X DAY PILL BY MOUTH W/FOOD
     Route: 048
     Dates: start: 20151117, end: 20151119
  4. ROSUVASTATIN [Suspect]
     Active Substance: ROSUVASTATIN

REACTIONS (3)
  - Abdominal pain upper [None]
  - Amnesia [None]
  - Blood pressure increased [None]

NARRATIVE: CASE EVENT DATE: 20151117
